FAERS Safety Report 8362283-5 (Version None)
Quarter: 2012Q2

REPORT INFORMATION
  Report Type: 
  Country: None (occurrence: None)
  Receive Date: 20120515
  Receipt Date: 20120503
  Transmission Date: 20120825
  Serious: Yes (Other)
  Sender: FDA-Public Use
  Company Number: US-ELI_LILLY_AND_COMPANY-US201205002920

PATIENT
  Sex: Female

DRUGS (2)
  1. FORTEO [Suspect]
     Indication: OSTEOPOROSIS POSTMENOPAUSAL
     Dosage: UNK, QD
     Dates: start: 20120301
  2. FORTEO [Suspect]
     Dosage: UNK, QD

REACTIONS (6)
  - THORACIC VERTEBRAL FRACTURE [None]
  - CONSTIPATION [None]
  - RIB FRACTURE [None]
  - PAIN [None]
  - FALL [None]
  - FEELING ABNORMAL [None]
